FAERS Safety Report 6637484-4 (Version None)
Quarter: 2010Q1

REPORT INFORMATION
  Report Type: 
  Country: None (occurrence: None)
  Receive Date: 20100317
  Receipt Date: 20100315
  Transmission Date: 20100710
  Serious: Yes (Hospitalization, Other)
  Sender: FDA-Public Use
  Company Number: US-ASTRAZENECA-2006UW05183

PATIENT
  Age: 16215 Day
  Sex: Female
  Weight: 73.9 kg

DRUGS (28)
  1. SEROQUEL [Suspect]
     Indication: DEPRESSION
     Route: 048
     Dates: start: 20000801, end: 20010401
  2. SEROQUEL [Suspect]
     Indication: PSYCHOTIC DISORDER
     Route: 048
     Dates: start: 20000801, end: 20010401
  3. RISPERDAL [Concomitant]
     Dates: start: 20000801, end: 20001101
  4. PRAVACHOL [Concomitant]
  5. GLUCOPHAGE XR [Concomitant]
  6. WELLBUTRIN SR [Concomitant]
  7. LEVAQUIN [Concomitant]
  8. GEODON [Concomitant]
  9. CHANTIX [Concomitant]
  10. ABILIFY [Concomitant]
  11. TRAZODONE HCL [Concomitant]
  12. AMBIEN [Concomitant]
  13. LAMISIL [Concomitant]
  14. LIPITOR [Concomitant]
  15. DEPAKOTE [Concomitant]
  16. SONATA [Concomitant]
  17. ETODOLAC [Concomitant]
  18. METHYLPREDNISOLONE [Concomitant]
  19. NAPROXEN [Concomitant]
  20. COMBIVENT [Concomitant]
  21. PREDNISONE [Concomitant]
  22. CELEXA [Concomitant]
  23. PROPOXYPHENE HCL [Concomitant]
  24. AZMACORT [Concomitant]
  25. SPIRONOLACTONE [Concomitant]
  26. VENTOLIN [Concomitant]
  27. TRILOFAN [Concomitant]
  28. COGENTIN [Concomitant]

REACTIONS (19)
  - ASTHMA [None]
  - BRONCHITIS [None]
  - BRONCHOSPASM [None]
  - BURSITIS [None]
  - CELLULITIS [None]
  - CONTUSION [None]
  - DIABETES MELLITUS [None]
  - FATIGUE [None]
  - GASTROOESOPHAGEAL REFLUX DISEASE [None]
  - HEPATIC ENZYME INCREASED [None]
  - LIVER DISORDER [None]
  - MAJOR DEPRESSION [None]
  - MUSCULOSKELETAL CHEST PAIN [None]
  - NEUROPATHY PERIPHERAL [None]
  - ONYCHOMYCOSIS [None]
  - PERIARTHRITIS [None]
  - SCHIZOTYPAL PERSONALITY DISORDER [None]
  - SKIN LESION [None]
  - STRESS URINARY INCONTINENCE [None]
